FAERS Safety Report 12949838 (Version 2)
Quarter: 2016Q4

REPORT INFORMATION
  Report Type: Spontaneous
  Country: JP (occurrence: JP)
  Receive Date: 20161117
  Receipt Date: 20161123
  Transmission Date: 20170207
  Serious: Yes (Death, Other)
  Sender: FDA-Public Use
  Company Number: JP-PFIZER INC-2016530236

PATIENT
  Age: 70 Year
  Sex: Male
  Weight: 67 kg

DRUGS (31)
  1. CAMPTO [Suspect]
     Active Substance: IRINOTECAN
     Dosage: 250 MG, 1X/DAY
     Route: 041
     Dates: start: 20140910, end: 20140910
  2. LEVOFOLINATE [Suspect]
     Active Substance: LEVOLEUCOVORIN CALCIUM
     Dosage: 325 MG, 1X/DAY
     Route: 041
     Dates: start: 20141022, end: 20141022
  3. LEVOFOLINATE [Suspect]
     Active Substance: LEVOLEUCOVORIN CALCIUM
     Dosage: 325 MG, 1X/DAY
     Route: 041
     Dates: start: 20141203, end: 20141203
  4. CAMPTO [Suspect]
     Active Substance: IRINOTECAN
     Dosage: 250 MG, 1X/DAY
     Route: 041
     Dates: start: 20140806, end: 20140806
  5. LEVOFOLINATE [Suspect]
     Active Substance: LEVOLEUCOVORIN CALCIUM
     Dosage: 325 MG, 1X/DAY
     Route: 041
     Dates: start: 20141119, end: 20141119
  6. ELPLAT [Suspect]
     Active Substance: OXALIPLATIN
     Dosage: 100 MG, 1X/DAY
     Route: 041
     Dates: start: 20141006, end: 20141006
  7. LEVOFOLINATE [Suspect]
     Active Substance: LEVOLEUCOVORIN CALCIUM
     Dosage: 325 MG, 1X/DAY
     Route: 041
     Dates: start: 20140820, end: 20140820
  8. CAMPTO [Suspect]
     Active Substance: IRINOTECAN
     Indication: PANCREATIC CARCINOMA
     Dosage: 250 MG (145.8 MG/M2), 1X/DAY
     Route: 041
     Dates: start: 20140611, end: 20140611
  9. ELPLAT [Suspect]
     Active Substance: OXALIPLATIN
     Dosage: 100 MG, 1X/DAY
     Route: 041
     Dates: start: 20140718, end: 20140718
  10. LEVOFOLINATE [Suspect]
     Active Substance: LEVOLEUCOVORIN CALCIUM
     Indication: PANCREATIC CARCINOMA
     Dosage: 325 MG (189.5 MG/M2), 1X/DAY
     Route: 041
     Dates: start: 20140611, end: 20140611
  11. LEVOFOLINATE [Suspect]
     Active Substance: LEVOLEUCOVORIN CALCIUM
     Dosage: 325 MG, 1X/DAY
     Route: 041
     Dates: start: 20140806, end: 20140806
  12. CAMPTO [Suspect]
     Active Substance: IRINOTECAN
     Dosage: 250 MG, 1X/DAY
     Route: 041
     Dates: start: 20140704, end: 20140704
  13. ELPLAT [Suspect]
     Active Substance: OXALIPLATIN
     Dosage: 100 MG, 1X/DAY
     Route: 041
     Dates: start: 20141119, end: 20141119
  14. LEVOFOLINATE [Suspect]
     Active Substance: LEVOLEUCOVORIN CALCIUM
     Dosage: 325 MG, 1X/DAY
     Route: 041
     Dates: start: 20140704, end: 20140704
  15. LEVOFOLINATE [Suspect]
     Active Substance: LEVOLEUCOVORIN CALCIUM
     Dosage: 325 MG, 1X/DAY
     Route: 041
     Dates: start: 20140910, end: 20140910
  16. 5-FU /00098801/ [Concomitant]
     Active Substance: FLUOROURACIL
     Dosage: 4000 MG (2332.4 MG/M2/D1-2), 1X/DAY
     Route: 041
     Dates: start: 20140611, end: 20141203
  17. CAMPTO [Suspect]
     Active Substance: IRINOTECAN
     Dosage: 250 MG, 1X/DAY
     Route: 041
     Dates: start: 20140718, end: 20140718
  18. ELPLAT [Suspect]
     Active Substance: OXALIPLATIN
     Indication: PANCREATIC CARCINOMA
     Dosage: 140 MG (81.6 MG/M2), 1X/DAY
     Route: 041
     Dates: start: 20140611, end: 20140611
  19. ELPLAT [Suspect]
     Active Substance: OXALIPLATIN
     Dosage: 100 MG, 1X/DAY
     Route: 041
     Dates: start: 20140820, end: 20140820
  20. ELPLAT [Suspect]
     Active Substance: OXALIPLATIN
     Dosage: 100 MG, 1X/DAY
     Route: 041
     Dates: start: 20141022, end: 20141022
  21. ELPLAT [Suspect]
     Active Substance: OXALIPLATIN
     Dosage: 100 MG, 1X/DAY
     Route: 041
     Dates: start: 20141203, end: 20141203
  22. LEVOFOLINATE [Suspect]
     Active Substance: LEVOLEUCOVORIN CALCIUM
     Dosage: 325 MG, 1X/DAY
     Route: 041
     Dates: start: 20140718, end: 20140718
  23. ELPLAT [Suspect]
     Active Substance: OXALIPLATIN
     Dosage: 100 MG (58.3 MG/M2), 1X/DAY
     Route: 041
     Dates: start: 20140704, end: 20140704
  24. ELPLAT [Suspect]
     Active Substance: OXALIPLATIN
     Dosage: 100 MG, 1X/DAY
     Route: 041
     Dates: start: 20140910, end: 20140910
  25. CAMPTO [Suspect]
     Active Substance: IRINOTECAN
     Dosage: 250 MG, 1X/DAY
     Route: 041
     Dates: start: 20140820, end: 20140820
  26. CAMPTO [Suspect]
     Active Substance: IRINOTECAN
     Dosage: 250 MG, 1X/DAY
     Route: 041
     Dates: start: 20141006, end: 20141006
  27. CAMPTO [Suspect]
     Active Substance: IRINOTECAN
     Dosage: 250 MG, 1X/DAY
     Route: 041
     Dates: start: 20141022, end: 20141022
  28. CAMPTO [Suspect]
     Active Substance: IRINOTECAN
     Dosage: 250 MG, 1X/DAY
     Route: 041
     Dates: start: 20141119, end: 20141119
  29. CAMPTO [Suspect]
     Active Substance: IRINOTECAN
     Dosage: 250 MG, 1X/DAY
     Route: 041
     Dates: start: 20141203, end: 20141203
  30. ELPLAT [Suspect]
     Active Substance: OXALIPLATIN
     Dosage: 100 MG, 1X/DAY
     Route: 041
     Dates: start: 20140806, end: 20140806
  31. LEVOFOLINATE [Suspect]
     Active Substance: LEVOLEUCOVORIN CALCIUM
     Dosage: 325 MG, 1X/DAY
     Route: 041
     Dates: start: 20141006, end: 20141006

REACTIONS (11)
  - Nausea [Unknown]
  - Platelet count decreased [Unknown]
  - Febrile neutropenia [Unknown]
  - Haemoglobin decreased [Unknown]
  - Pyrexia [Unknown]
  - Decreased appetite [Unknown]
  - Neutrophil count decreased [Unknown]
  - Fatigue [Unknown]
  - Peripheral sensory neuropathy [Unknown]
  - Neoplasm progression [Fatal]
  - White blood cell count decreased [Unknown]

NARRATIVE: CASE EVENT DATE: 20140619
